FAERS Safety Report 17841800 (Version 5)
Quarter: 2020Q2

REPORT INFORMATION
  Report Type: Spontaneous
  Country: US (occurrence: US)
  Receive Date: 20200529
  Receipt Date: 20200604
  Transmission Date: 20200714
  Serious: Yes (Other)
  Sender: FDA-Public Use
  Company Number: US-PFIZER INC-2014130743

PATIENT
  Age: 60 Year
  Sex: Female
  Weight: 62.8 kg

DRUGS (4)
  1. CALAN SR [Suspect]
     Active Substance: VERAPAMIL HYDROCHLORIDE
     Dosage: 480 MG (2 TABLETS), DAILY
     Route: 048
  2. CALAN SR [Suspect]
     Active Substance: VERAPAMIL HYDROCHLORIDE
     Dosage: 240 MG
  3. HYPURIN PORCINE NEUTRAL [Concomitant]
     Indication: TYPE 1 DIABETES MELLITUS
     Dosage: TAKES 6-10 PLUS INJECTIONS, DAILY
  4. HYPURIN PORCINE ISOPHANE [Concomitant]
     Indication: TYPE 1 DIABETES MELLITUS
     Dosage: 6 TO 10 PLUS INJECTIONS, DAILY

REACTIONS (14)
  - Drug specific antibody present [Unknown]
  - Pain [Unknown]
  - Back injury [Unknown]
  - Malaise [Unknown]
  - Loss of consciousness [Unknown]
  - Fall [Unknown]
  - Blood pressure fluctuation [Unknown]
  - Blood glucose fluctuation [Unknown]
  - Tremor [Unknown]
  - Progressive multiple sclerosis [Unknown]
  - Visual impairment [Unknown]
  - Spinal column injury [Unknown]
  - Blindness [Unknown]
  - Dyspnoea [Unknown]

NARRATIVE: CASE EVENT DATE: 201901
